FAERS Safety Report 19501777 (Version 4)
Quarter: 2021Q4

REPORT INFORMATION
  Report Type: Report from Study
  Country: AU (occurrence: AU)
  Receive Date: 20210707
  Receipt Date: 20211004
  Transmission Date: 20220303
  Serious: Yes (Death, Life-Threatening, Hospitalization)
  Sender: FDA-Public Use
  Company Number: AU-GLAXOSMITHKLINE-AU2021GSK000070

PATIENT
  Age: 61 Year
  Sex: Male

DRUGS (32)
  1. BELANTAMAB MAFODOTIN [Suspect]
     Active Substance: BELANTAMAB MAFODOTIN
     Indication: Plasma cell myeloma
     Dosage: 1.9 MG/KG, CYC
     Route: 042
     Dates: start: 20210625, end: 20210625
  2. BORTEZOMIB [Suspect]
     Active Substance: BORTEZOMIB
     Indication: Plasma cell myeloma
     Dosage: LAST DOSE BORTEZOMIB 05 JUL,DEXAMETHASONE 10 JUL
     Dates: start: 20210625
  3. ASPIRIN [Concomitant]
     Active Substance: ASPIRIN
     Indication: Thrombosis prophylaxis
     Dosage: 100 MG, QD
     Route: 048
     Dates: start: 201802, end: 20210703
  4. NALOXONE HYDROCHLORIDE\OXYCODONE HYDROCHLORIDE [Concomitant]
     Active Substance: NALOXONE HYDROCHLORIDE\OXYCODONE HYDROCHLORIDE
     Indication: Plasma cell myeloma
     Dosage: 1 DF, PRN
     Route: 048
     Dates: start: 20180718, end: 20210713
  5. OXYCODONE HYDROCHLORIDE [Concomitant]
     Active Substance: OXYCODONE HYDROCHLORIDE
     Indication: Plasma cell myeloma
     Dosage: 5 MG, PRN
     Route: 048
     Dates: start: 20180619, end: 20210705
  6. VALACYCLOVIR HYDROCHLORIDE [Concomitant]
     Active Substance: VALACYCLOVIR HYDROCHLORIDE
     Indication: Antiviral prophylaxis
     Dosage: 500 MG, QD
     Route: 048
     Dates: start: 20210514
  7. LIDOCAINE HYDROCHLORIDE [Concomitant]
     Active Substance: LIDOCAINE HYDROCHLORIDE
     Indication: Plasma cell myeloma
     Dosage: 10 ML, SINGLE
     Route: 058
     Dates: start: 20210608, end: 20210608
  8. METHOXYFLURANE [Concomitant]
     Active Substance: METHOXYFLURANE
     Indication: Plasma cell myeloma
     Dosage: 1 UNIT, ONCE ONLY
     Route: 055
     Dates: start: 20210608, end: 20210608
  9. SODIUM CHLORIDE [Concomitant]
     Active Substance: SODIUM CHLORIDE
     Indication: Plasma cell myeloma
     Dosage: 1 L, PRN
     Route: 042
     Dates: start: 20210618
  10. SODIUM CHLORIDE [Concomitant]
     Active Substance: SODIUM CHLORIDE
     Dosage: 500 ML, PRN
     Route: 042
     Dates: start: 20210620
  11. SODIUM CHLORIDE [Concomitant]
     Active Substance: SODIUM CHLORIDE
     Dosage: 100 ML, SINGLE
     Route: 042
     Dates: start: 20210622, end: 20210622
  12. SODIUM CHLORIDE [Concomitant]
     Active Substance: SODIUM CHLORIDE
     Dosage: 2 L, SINGLE
     Route: 042
     Dates: start: 20210626, end: 20210626
  13. PAMIDRONATE DISODIUM [Concomitant]
     Active Substance: PAMIDRONATE DISODIUM
     Indication: Plasma cell myeloma
     Dosage: 60 MG, PRN
     Route: 042
     Dates: start: 20210618, end: 20210628
  14. PAMIDRONATE DISODIUM [Concomitant]
     Active Substance: PAMIDRONATE DISODIUM
     Dosage: 30 MG, SINGLE
     Route: 042
     Dates: start: 20210620, end: 20210620
  15. ZOLEDRONIC ACID [Concomitant]
     Active Substance: ZOLEDRONIC ACID
     Indication: Plasma cell myeloma
     Dosage: 4 MG, PRN
     Route: 042
     Dates: start: 20181001, end: 20210622
  16. CARMELLOSE EYE DROP [Concomitant]
     Indication: Prophylaxis
     Dosage: 1 DROP, PRN
     Route: 047
     Dates: start: 20210625, end: 20210630
  17. MOVICOL [Concomitant]
     Active Substance: POLYETHYLENE GLYCOL 3350\POTASSIUM CHLORIDE\SODIUM BICARBONATE\SODIUM CHLORIDE
     Indication: Constipation
     Dosage: 2 DF, PRN
     Route: 048
     Dates: start: 201804, end: 20210712
  18. MENAQUINONE 6 [Concomitant]
     Active Substance: MENAQUINONE 6
     Dosage: 1 DF, PRN
     Route: 048
     Dates: start: 201802, end: 20210630
  19. MAGNESIUM [Concomitant]
     Active Substance: MAGNESIUM
     Indication: Metabolic disorder prophylaxis
     Dosage: 160 UG, PRN
     Route: 048
     Dates: start: 201802, end: 20210630
  20. VITAMIN C [Concomitant]
     Active Substance: ASCORBIC ACID
     Dosage: 500 MG, PRN
     Route: 048
     Dates: start: 201802, end: 20210630
  21. FOLIC ACID [Concomitant]
     Active Substance: FOLIC ACID
     Dosage: 500 UG, PRN
     Route: 048
     Dates: start: 201802, end: 20210630
  22. CO ENZYME Q 10 [Concomitant]
     Indication: Prophylaxis
     Dosage: 100 MG, PRN
     Route: 048
     Dates: start: 201802, end: 20210630
  23. ZINC [Concomitant]
     Active Substance: ZINC
     Dosage: 25 UG, PRN
     Route: 048
     Dates: start: 201802, end: 20210630
  24. SODIUM BICARBONATE [Concomitant]
     Active Substance: SODIUM BICARBONATE
     Indication: Plasma cell myeloma
     Dosage: 840 MG, PRN
     Route: 048
     Dates: start: 20210701
  25. RISPERIDONE [Concomitant]
     Active Substance: RISPERIDONE
     Indication: Plasma cell myeloma
     Dosage: 0.5 MG, SINGLE
     Route: 048
     Dates: start: 20210704, end: 20210704
  26. ACETAMINOPHEN [Concomitant]
     Active Substance: ACETAMINOPHEN
     Indication: Plasma cell myeloma
     Dosage: 1 G, SINGLE
     Route: 042
     Dates: start: 20210704, end: 20210704
  27. FLUCONAZOLE [Concomitant]
     Active Substance: FLUCONAZOLE
     Indication: Antifungal prophylaxis
     Dosage: 200 MG, QD
     Route: 048
     Dates: start: 20210706
  28. FENTANYL TRANSDERMAL SYSTEM [Concomitant]
     Active Substance: FENTANYL
     Indication: Plasma cell myeloma
     Dosage: 37 UG, CONTINUOUS INFUSION
     Route: 062
     Dates: start: 20210703, end: 20210705
  29. DENOSUMAB [Concomitant]
     Active Substance: DENOSUMAB
     Indication: Plasma cell myeloma
     Dosage: 120 MG, SINGLE
     Route: 058
     Dates: start: 20210705, end: 20210705
  30. CALCITONIN [Concomitant]
     Active Substance: CALCITONIN
     Indication: Plasma cell myeloma
     Dosage: 500 ML, PRN
     Route: 042
     Dates: start: 20210702, end: 20210707
  31. MAGNESIUM SULFATE + SALINE SOLUTION [Concomitant]
     Indication: Plasma cell myeloma
     Dosage: 100 ML, PRN
     Route: 042
     Dates: start: 20210708
  32. DEXAMETHASONE [Suspect]
     Active Substance: DEXAMETHASONE

REACTIONS (3)
  - Plasma cell myeloma [Fatal]
  - Sepsis [Not Recovered/Not Resolved]
  - Tumour lysis syndrome [Not Recovered/Not Resolved]

NARRATIVE: CASE EVENT DATE: 20210629
